FAERS Safety Report 24961254 (Version 1)
Quarter: 2025Q1

REPORT INFORMATION
  Report Type: Report from Study
  Country: CO (occurrence: CO)
  Receive Date: 20250212
  Receipt Date: 20250212
  Transmission Date: 20250409
  Serious: Yes (Other)
  Sender: ABBVIE
  Company Number: CO-ABBVIE-6126366

PATIENT
  Sex: Female
  Weight: 58 kg

DRUGS (1)
  1. RINVOQ [Suspect]
     Active Substance: UPADACITINIB
     Indication: Rheumatoid arthritis
     Dosage: BOTTLE
     Route: 048
     Dates: start: 20220817, end: 20250130

REACTIONS (2)
  - Rotator cuff syndrome [Not Recovered/Not Resolved]
  - Rotator cuff syndrome [Unknown]
